FAERS Safety Report 16733984 (Version 18)
Quarter: 2022Q1

REPORT INFORMATION
  Report Type: Report from Study
  Country: US (occurrence: US)
  Receive Date: 20190823
  Receipt Date: 20220314
  Transmission Date: 20220424
  Serious: Yes (Hospitalization)
  Sender: FDA-Public Use
  Company Number: None

PATIENT
  Age: 45 Year
  Sex: Female
  Weight: 98.883 kg

DRUGS (8)
  1. TREPROSTINIL [Suspect]
     Active Substance: TREPROSTINIL
     Indication: Pulmonary arterial hypertension
     Dosage: CONC: 2.5 MG/ML, 40 NG/KG/MIN, CONTINUOUS
     Route: 042
     Dates: start: 20190813
  2. TREPROSTINIL [Suspect]
     Active Substance: TREPROSTINIL
     Dosage: CONC: 2.5 MG/ML, 60 NG/KG/MIN, CONTINUOUS
     Route: 042
  3. TREPROSTINIL [Suspect]
     Active Substance: TREPROSTINIL
     Dosage: CONC: 2.5 MG/ML, 60 NG/KG/MIN, CONTINOUS
     Route: 042
  4. TREPROSTINIL [Suspect]
     Active Substance: TREPROSTINIL
     Dosage: CONC: 5 MG/ML, 61 NG/KG/MIN, CONT
     Route: 042
     Dates: start: 20190813
  5. TREPROSTINIL [Suspect]
     Active Substance: TREPROSTINIL
     Dosage: STRENGTH: 5 MG/ML, 66 NG/KG/MIN, CONT
     Route: 042
     Dates: start: 20190813
  6. OPSUMIT [Concomitant]
     Active Substance: MACITENTAN
     Indication: Product used for unknown indication
     Dosage: UNK
     Route: 065
  7. ADEMPAS [Concomitant]
     Active Substance: RIOCIGUAT
     Indication: Product used for unknown indication
     Dosage: UNK
     Route: 065
  8. TADALAFIL [Concomitant]
     Active Substance: TADALAFIL
     Indication: Product used for unknown indication
     Dosage: UNK
     Route: 065

REACTIONS (15)
  - Complication associated with device [Unknown]
  - Vascular device infection [Unknown]
  - Migraine [Unknown]
  - Dyspnoea [Unknown]
  - Arthralgia [Unknown]
  - Dizziness [Unknown]
  - Headache [Unknown]
  - Pain in extremity [Unknown]
  - Myalgia [Unknown]
  - Diarrhoea [Unknown]
  - Nausea [Unknown]
  - Infusion site pruritus [Unknown]
  - Infusion site mass [Unknown]
  - Infusion site rash [Unknown]
  - Infusion site erythema [Unknown]

NARRATIVE: CASE EVENT DATE: 20200207
